FAERS Safety Report 15649655 (Version 1)
Quarter: 2018Q4

REPORT INFORMATION
  Report Type: Other
  Country: None (occurrence: FR)
  Receive Date: 20181122
  Receipt Date: 20181122
  Transmission Date: 20190205
  Serious: Yes (Congenital Anomaly)
  Sender: FDA-Public Use
  Company Number: FR-LABORATOIRE HRA PHARMA-2059217

PATIENT
  Sex: Female
  Weight: 3.65 kg

DRUGS (3)
  1. EFFERALGAN (PARACETAMOL) [Concomitant]
  2. GINGER. [Concomitant]
     Active Substance: GINGER
  3. ELLA [Suspect]
     Active Substance: ULIPRISTAL ACETATE
     Indication: EXPOSURE DURING PREGNANCY
     Route: 064
     Dates: start: 20170522, end: 20170522

REACTIONS (1)
  - Cataract congenital [Unknown]
